FAERS Safety Report 24744944 (Version 1)
Quarter: 2024Q4

REPORT INFORMATION
  Report Type: Spontaneous
  Country: FR (occurrence: FR)
  Receive Date: 20241217
  Receipt Date: 20241217
  Transmission Date: 20250114
  Serious: Yes (Hospitalization, Other)
  Sender: MERCK
  Company Number: None

PATIENT
  Age: 74 Year
  Sex: Male
  Weight: 92 kg

DRUGS (11)
  1. LETERMOVIR [Interacting]
     Active Substance: LETERMOVIR
     Indication: Cytomegalovirus infection
     Dosage: 480 MILLIGRAM, QD
     Route: 048
     Dates: start: 20241015, end: 20241031
  2. PROGRAF [Interacting]
     Active Substance: TACROLIMUS
     Indication: Prophylaxis against transplant rejection
     Dosage: 3 MILLIGRAM, QD
     Route: 048
     Dates: start: 202403
  3. CELLCEPT [Concomitant]
     Active Substance: MYCOPHENOLATE MOFETIL
     Dosage: UNK
  4. PREDNISONE [Concomitant]
     Active Substance: PREDNISONE
     Dosage: UNK
  5. ELIQUIS [Concomitant]
     Active Substance: APIXABAN
  6. BISOPROLOL FUMARATE [Concomitant]
     Active Substance: BISOPROLOL FUMARATE
     Dosage: UNK
  7. TRESIBA [Concomitant]
     Active Substance: INSULIN DEGLUDEC
     Dosage: UNK
  8. NOVORAPID [Concomitant]
     Active Substance: INSULIN ASPART
  9. BICAFRES [Concomitant]
     Dosage: UNK
  10. CHOLECALCIFEROL [Concomitant]
     Active Substance: CHOLECALCIFEROL
     Dosage: UNK
  11. TAMSULOSIN HYDROCHLORIDE [Concomitant]
     Active Substance: TAMSULOSIN HYDROCHLORIDE
     Dosage: UNK

REACTIONS (2)
  - Pancytopenia [Recovering/Resolving]
  - Immunosuppressant drug level increased [Recovered/Resolved]

NARRATIVE: CASE EVENT DATE: 20241023
